FAERS Safety Report 24075436 (Version 1)
Quarter: 2024Q3

REPORT INFORMATION
  Report Type: Spontaneous
  Country: FR (occurrence: FR)
  Receive Date: 20240710
  Receipt Date: 20240710
  Transmission Date: 20241017
  Serious: Yes (Hospitalization)
  Sender: MYLAN
  Company Number: None

PATIENT
  Age: 78 Year
  Sex: Male
  Weight: 68 kg

DRUGS (3)
  1. DEXAMETHASONE [Suspect]
     Active Substance: DEXAMETHASONE
     Indication: Plasma cell myeloma
     Dosage: 40 MILLIGRAM, 3 CYCLE, 40 MG ON D1, D8 AND D15 OF EACH 28-DAY CYCLE
     Route: 042
     Dates: start: 20240409
  2. KYPROLIS [Suspect]
     Active Substance: CARFILZOMIB
     Indication: Plasma cell myeloma
     Dosage: 56 MILLIGRAM/SQ. METER, 3 CYCLE, 56 MG/M? AT D1, D8 AND D15 OF EACH 28-DAY CYCLE
     Route: 042
     Dates: start: 20240409
  3. POMALIDOMIDE [Suspect]
     Active Substance: POMALIDOMIDE
     Indication: Plasma cell myeloma
     Dosage: 4 MILLIGRAM, CYCLE, 4 MG/D FROM D1 TO D21 OF EACH 28-DAY CYCLE
     Route: 048
     Dates: start: 20240409

REACTIONS (1)
  - Acute myocardial infarction [Recovering/Resolving]

NARRATIVE: CASE EVENT DATE: 20240523
